FAERS Safety Report 4513245-7 (Version None)
Quarter: 2004Q4

REPORT INFORMATION
  Report Type: 
  Country: None (occurrence: None)
  Receive Date: 20041124
  Receipt Date: 20041116
  Transmission Date: 20050328
  Serious: Yes (Other)
  Sender: FDA-Public Use
  Company Number: HQWYE559819NOV04

PATIENT
  Age: 60 Year
  Sex: Female

DRUGS (2)
  1. CORDARONE [Suspect]
     Indication: ARRHYTHMIA SUPRAVENTRICULAR
     Dates: start: 19930101, end: 19960101
  2. CORDARONE [Suspect]
     Indication: VENTRICULAR ARRHYTHMIA
     Dates: start: 19930101, end: 19960101

REACTIONS (4)
  - BASAL CELL CARCINOMA [None]
  - LIVER DISORDER [None]
  - PHOTOSENSITIVITY REACTION [None]
  - THYROID DISORDER [None]
